FAERS Safety Report 15434947 (Version 1)
Quarter: 2018Q3

REPORT INFORMATION
  Report Type: Spontaneous
  Country: US (occurrence: US)
  Receive Date: 20180927
  Receipt Date: 20180927
  Transmission Date: 20181010
  Serious: Yes (Hospitalization)
  Sender: FDA-Public Use
  Company Number: US-INDIVIOR LIMITED-INDV-107256-2017

PATIENT
  Age: 21 Year
  Sex: Female

DRUGS (3)
  1. OPIOIDS [Suspect]
     Active Substance: UNSPECIFIED INGREDIENT
     Indication: PRODUCT USED FOR UNKNOWN INDICATION
     Dosage: UNK
     Route: 065
  2. SUBOXONE [Suspect]
     Active Substance: BUPRENORPHINE HYDROCHLORIDE\NALOXONE HYDROCHLORIDE
     Dosage: STARTED USING IT EVERY HOUR TO TWO HOURS A DAY
     Route: 065
  3. SUBOXONE [Suspect]
     Active Substance: BUPRENORPHINE HYDROCHLORIDE\NALOXONE HYDROCHLORIDE
     Indication: DRUG DEPENDENCE
     Dosage: 8MG TO TAKE OVER THREE PERIODS EACH DAY
     Route: 065

REACTIONS (9)
  - Road traffic accident [Recovered/Resolved]
  - Overdose [Recovered/Resolved]
  - Drug dependence [Unknown]
  - Intentional product misuse [Unknown]
  - Product use issue [Unknown]
  - Euphoric mood [Unknown]
  - Therapy cessation [Recovered/Resolved]
  - Impaired driving ability [Unknown]
  - Drug abuse [Unknown]

NARRATIVE: CASE EVENT DATE: 201608
